FAERS Safety Report 5196344-9 (Version None)
Quarter: 2006Q4

REPORT INFORMATION
  Report Type: 
  Country: None (occurrence: None)
  Receive Date: 20061222
  Receipt Date: 20061208
  Transmission Date: 20070319
  Serious: Yes (Other)
  Sender: FDA-Public Use
  Company Number: 2006123974

PATIENT
  Age: 83 Year
  Sex: Male
  Weight: 72 kg

DRUGS (2)
  1. AMLODIPINE [Suspect]
     Indication: HYPERTENSION
     Dosage: 5 MG (5 MG, 1 IN 1 D);
     Dates: start: 20060401
  2. NEBIVOLOL HCL [Concomitant]

REACTIONS (6)
  - EPISTAXIS [None]
  - FATIGUE [None]
  - GAIT DISTURBANCE [None]
  - HYPERTENSION [None]
  - OEDEMA PERIPHERAL [None]
  - VASODILATATION [None]
